FAERS Safety Report 13725897 (Version 1)
Quarter: 2017Q3

REPORT INFORMATION
  Report Type: Spontaneous
  Country: US (occurrence: US)
  Receive Date: 20170706
  Receipt Date: 20170706
  Transmission Date: 20171127
  Serious: Yes (Other)
  Sender: FDA-Public Use
  Company Number: None

PATIENT
  Age: 32 Year
  Sex: Female
  Weight: 53.1 kg

DRUGS (7)
  1. BUPROPION. [Concomitant]
     Active Substance: BUPROPION
  2. DAILY MULTIVITAMIN [Concomitant]
     Active Substance: VITAMINS
  3. IRON [Concomitant]
     Active Substance: IRON
  4. TOPAMAX [Suspect]
     Active Substance: TOPIRAMATE
     Indication: TENSION HEADACHE
     Route: 048
     Dates: start: 20170617, end: 20170618
  5. METFORMIN [Concomitant]
     Active Substance: METFORMIN HYDROCHLORIDE
  6. TOPAMAX [Suspect]
     Active Substance: TOPIRAMATE
     Indication: PROPHYLAXIS
     Route: 048
     Dates: start: 20170617, end: 20170618
  7. MAGNESIUM [Concomitant]
     Active Substance: MAGNESIUM

REACTIONS (4)
  - Middle insomnia [None]
  - Panic attack [None]
  - Sleep terror [None]
  - Paraesthesia [None]

NARRATIVE: CASE EVENT DATE: 20170628
